FAERS Safety Report 10202306 (Version 1)
Quarter: 2014Q2

REPORT INFORMATION
  Report Type: Spontaneous
  Country: US (occurrence: US)
  Receive Date: 20140528
  Receipt Date: 20140528
  Transmission Date: 20141212
  Serious: No
  Sender: FDA-Public Use
  Company Number: US-BRISTOL-MYERS SQUIBB COMPANY-20319570

PATIENT
  Sex: Female

DRUGS (5)
  1. BYETTA [Suspect]
  2. METFORMIN HCL [Suspect]
  3. NOVOLOG [Suspect]
  4. GLIPIZIDE [Suspect]
  5. LANTUS [Suspect]

REACTIONS (1)
  - Blood glucose decreased [Recovered/Resolved]
